FAERS Safety Report 5595592-3 (Version None)
Quarter: 2008Q1

REPORT INFORMATION
  Report Type: 
  Country: None (occurrence: None)
  Receive Date: 20080118
  Receipt Date: 20080108
  Transmission Date: 20080703
  Serious: Yes (Hospitalization)
  Sender: FDA-Public Use
  Company Number: PHHY2008AT00541

PATIENT
  Sex: Male

DRUGS (3)
  1. CANDESARTAN CILEXETIL [Concomitant]
     Dosage: 8/26
     Dates: start: 20010101
  2. NORVASC [Concomitant]
     Dosage: 5 MG
     Dates: start: 20010101
  3. EXFORGE [Suspect]
     Indication: HYPERTENSION
     Dosage: 10/160
     Dates: start: 20071128

REACTIONS (1)
  - CIRCULATORY COLLAPSE [None]
